FAERS Safety Report 14783551 (Version 1)
Quarter: 2018Q2

REPORT INFORMATION
  Report Type: Spontaneous
  Country: DE (occurrence: DE)
  Receive Date: 20180420
  Receipt Date: 20180420
  Transmission Date: 20180711
  Serious: Yes (Hospitalization)
  Sender: FDA-Public Use
  Company Number: DE-BAYER-2018-075619

PATIENT
  Age: 61 Year
  Sex: Male
  Weight: 92 kg

DRUGS (4)
  1. ACETYLSALICYLIC ACID (} 100 MG) [Suspect]
     Active Substance: ASPIRIN
  2. SYNTARIS [Concomitant]
     Dosage: 0.25 MG, BID
     Route: 045
  3. ATMADISC [Concomitant]
     Active Substance: FLUTICASONE PROPIONATE\SALMETEROL XINAFOATE
     Dosage: BID (250/50 ?G)
     Route: 055
  4. MONTELUKAST [Concomitant]
     Active Substance: MONTELUKAST SODIUM
     Dosage: 10 MG, QD
     Route: 048

REACTIONS (3)
  - Medication monitoring error [Unknown]
  - Obstructive airways disorder [Unknown]
  - Dyspnoea [Unknown]
